FAERS Safety Report 11274381 (Version 1)
Quarter: 2015Q3

REPORT INFORMATION
  Report Type: Report from Study
  Country: NL (occurrence: NL)
  Receive Date: 20150715
  Receipt Date: 20150715
  Transmission Date: 20151125
  Serious: Yes (Death, Other)
  Sender: FDA-Public Use
  Company Number: NL-ABBVIE-15P-114-1427093-00

PATIENT
  Age: 80 Year
  Sex: Male
  Weight: 47 kg

DRUGS (1)
  1. LUCRIN [Suspect]
     Active Substance: LEUPROLIDE ACETATE
     Indication: PROSTATE CANCER
     Route: 058
     Dates: start: 20131112

REACTIONS (2)
  - Death [Fatal]
  - Metastases to bone [Unknown]

NARRATIVE: CASE EVENT DATE: 20150630
